FAERS Safety Report 16182714 (Version 3)
Quarter: 2019Q2

REPORT INFORMATION
  Report Type: Spontaneous
  Country: CO (occurrence: CO)
  Receive Date: 20190411
  Receipt Date: 20190613
  Transmission Date: 20190711
  Serious: Yes (Hospitalization, Other)
  Sender: FDA-Public Use
  Company Number: CO-AMGEN-COLSP2019056528

PATIENT
  Age: 61 Year
  Sex: Female

DRUGS (2)
  1. ENBREL [Suspect]
     Active Substance: ETANERCEPT
     Indication: RHEUMATOID ARTHRITIS
     Dosage: 50 MG, WEEKLY
     Route: 058
     Dates: start: 20181205, end: 20190102
  2. ENBREL [Suspect]
     Active Substance: ETANERCEPT
     Dosage: 50 MG, WEEKLY
     Route: 058
     Dates: start: 20190313

REACTIONS (12)
  - Secretion discharge [Unknown]
  - Pyrexia [Unknown]
  - Condition aggravated [Not Recovered/Not Resolved]
  - Vertigo [Recovering/Resolving]
  - Injection site pain [Unknown]
  - Hypersensitivity [Unknown]
  - Influenza [Unknown]
  - Abdominal discomfort [Unknown]
  - Balance disorder [Unknown]
  - Cough [Unknown]
  - Swelling face [Unknown]
  - Respiratory tract infection [Unknown]
